FAERS Safety Report 25137438 (Version 1)
Quarter: 2025Q1

REPORT INFORMATION
  Report Type: Spontaneous
  Country: SE (occurrence: SE)
  Receive Date: 20250329
  Receipt Date: 20250329
  Transmission Date: 20250409
  Serious: Yes (Other)
  Sender: TEVA
  Company Number: SE-TEVA-VS-3312227

PATIENT
  Age: 46 Year
  Sex: Female

DRUGS (1)
  1. PACLITAXEL [Suspect]
     Active Substance: PACLITAXEL
     Indication: Product used for unknown indication
     Route: 065

REACTIONS (11)
  - Intraductal proliferative breast lesion [Unknown]
  - Dizziness [Unknown]
  - Postural orthostatic tachycardia syndrome [Unknown]
  - Dyspnoea [Unknown]
  - Amnesia [Unknown]
  - Tachycardia [Unknown]
  - Coronary artery disease [Unknown]
  - Visual impairment [Unknown]
  - Cognitive disorder [Unknown]
  - Dysphagia [Unknown]
  - Autonomic nervous system imbalance [Unknown]
